FAERS Safety Report 9961795 (Version 1)
Quarter: 2014Q1

REPORT INFORMATION
  Report Type: Spontaneous
  Country: US (occurrence: None)
  Receive Date: 20140304
  Receipt Date: 20140304
  Transmission Date: 20141002
  Serious: Yes (Other)
  Sender: FDA-Public Use
  Company Number: None

PATIENT
  Age: 66 Year
  Sex: Female

DRUGS (1)
  1. NEXAVAR 200MG BAYER [Suspect]
     Indication: LIVER DISORDER
     Route: 048
     Dates: start: 20110402, end: 20140218

REACTIONS (3)
  - Diarrhoea [None]
  - Blood magnesium decreased [None]
  - Blood potassium decreased [None]
